FAERS Safety Report 15475452 (Version 9)
Quarter: 2018Q4

REPORT INFORMATION
  Report Type: Report from Study
  Country: US (occurrence: US)
  Receive Date: 20181008
  Receipt Date: 20181207
  Transmission Date: 20190205
  Serious: Yes (Hospitalization, Other)
  Sender: FDA-Public Use
  Company Number: US-ACTELION-A-NJ2018-179758

PATIENT
  Age: 67 Year
  Sex: Female
  Weight: 91.61 kg

DRUGS (4)
  1. SILDENAFIL CITRATE. [Concomitant]
     Active Substance: SILDENAFIL CITRATE
  2. VELETRI [Suspect]
     Active Substance: EPOPROSTENOL
     Indication: PULMONARY ARTERIAL HYPERTENSION
     Dosage: 13 NG/KG, PER MIN
     Route: 042
  3. VELETRI [Suspect]
     Active Substance: EPOPROSTENOL
     Dosage: 15 NG/KG, PER MIN
     Route: 042
  4. VELETRI [Suspect]
     Active Substance: EPOPROSTENOL
     Dosage: 4 NG/KG, PER MIN
     Route: 042

REACTIONS (18)
  - Nasopharyngitis [Unknown]
  - Headache [Recovering/Resolving]
  - Rash [Unknown]
  - Hypoxia [Unknown]
  - Pain in jaw [Not Recovered/Not Resolved]
  - Transplant evaluation [Unknown]
  - Myalgia [Unknown]
  - Pulmonary veno-occlusive disease [Unknown]
  - Pain [Unknown]
  - Fatigue [Recovering/Resolving]
  - Arthralgia [Recovering/Resolving]
  - Pain in extremity [Unknown]
  - Oedema [Recovering/Resolving]
  - Rash papular [Unknown]
  - Back pain [Unknown]
  - Oxygen consumption decreased [Recovering/Resolving]
  - Insomnia [Recovering/Resolving]
  - Bone pain [Unknown]
